FAERS Safety Report 10205990 (Version 3)
Quarter: 2014Q2

REPORT INFORMATION
  Report Type: Spontaneous
  Country: GB (occurrence: GB)
  Receive Date: 20140530
  Receipt Date: 20140623
  Transmission Date: 20141212
  Serious: Yes (Other)
  Sender: FDA-Public Use
  Company Number: GB-JNJFOC-20140417278

PATIENT
  Age: 34 Year
  Sex: Male

DRUGS (2)
  1. DAKTARIN AKTIV [Suspect]
     Route: 061
  2. DAKTARIN AKTIV [Suspect]
     Indication: TINEA PEDIS
     Route: 061

REACTIONS (10)
  - Abasia [Recovered/Resolved]
  - Burning sensation [Recovered/Resolved]
  - Application site inflammation [Recovered/Resolved]
  - Application site irritation [Recovered/Resolved]
  - Application site swelling [Recovered/Resolved]
  - Blister [Recovered/Resolved]
  - Pain in extremity [Recovered/Resolved]
  - Discomfort [Unknown]
  - Lower extremity mass [Unknown]
  - Erythema [Unknown]
